FAERS Safety Report 9221762 (Version 1)
Quarter: 2013Q2

REPORT INFORMATION
  Report Type: Spontaneous
  Country: US (occurrence: US)
  Receive Date: 20130410
  Receipt Date: 20130410
  Transmission Date: 20140414
  Serious: Yes (Other)
  Sender: FDA-Public Use
  Company Number: US-JNJFOC-20130401986

PATIENT
  Sex: Female

DRUGS (1)
  1. BENADRYL ALLERGY ULTRATAB [Suspect]
     Indication: MULTIPLE ALLERGIES
     Dosage: 1 TABLET 2X PER DAY
     Route: 048

REACTIONS (2)
  - Urinary incontinence [Unknown]
  - Urine flow decreased [Unknown]
